FAERS Safety Report 24318114 (Version 1)
Quarter: 2024Q3

REPORT INFORMATION
  Report Type: Spontaneous
  Country: US (occurrence: US)
  Receive Date: 20240913
  Receipt Date: 20240913
  Transmission Date: 20241017
  Serious: No
  Sender: AMGEN
  Company Number: US-AMGEN-USASP2024181874

PATIENT
  Sex: Female

DRUGS (5)
  1. RAVICTI [Suspect]
     Active Substance: GLYCEROL PHENYLBUTYRATE
     Indication: Urea cycle disorder
     Dosage: 5 MILLILITER, TID
     Route: 048
  2. PREDNISONE [Suspect]
     Active Substance: PREDNISONE
     Indication: Product used for unknown indication
     Dosage: UNK
     Route: 065
  3. ARGININE [Concomitant]
     Active Substance: ARGININE
  4. POTASSIUM [Concomitant]
     Active Substance: POTASSIUM
  5. VITAMINS [Concomitant]
     Active Substance: VITAMINS

REACTIONS (3)
  - Decreased appetite [Recovered/Resolved]
  - Drug hypersensitivity [Unknown]
  - Weight decreased [Recovered/Resolved]
